FAERS Safety Report 14046441 (Version 1)
Quarter: 2017Q4

REPORT INFORMATION
  Report Type: Spontaneous
  Country: US (occurrence: None)
  Receive Date: 20171005
  Receipt Date: 20171005
  Transmission Date: 20180321
  Serious: Yes (Hospitalization)
  Sender: FDA-Public Use
  Company Number: None

PATIENT
  Age: 11 Year
  Sex: Male
  Weight: 44.3 kg

DRUGS (5)
  1. METHOTREXATE. [Suspect]
     Active Substance: METHOTREXATE
     Dates: end: 20170914
  2. ONCASPAR [Suspect]
     Active Substance: PEGASPARGASE
     Dates: end: 20170910
  3. VINCRISTINE SULFATE. [Suspect]
     Active Substance: VINCRISTINE SULFATE
     Dates: end: 20170921
  4. DAUNORUBICIN [Suspect]
     Active Substance: DAUNORUBICIN
     Dates: end: 20170921
  5. PREDNISONE. [Suspect]
     Active Substance: PREDNISONE
     Dates: end: 20170923

REACTIONS (11)
  - Polydipsia [None]
  - Vomiting [None]
  - Blood sodium decreased [None]
  - Lethargy [None]
  - Hypophagia [None]
  - Blood glucose increased [None]
  - Type 1 diabetes mellitus [None]
  - Nausea [None]
  - Dizziness [None]
  - Polyuria [None]
  - Diabetic ketoacidosis [None]

NARRATIVE: CASE EVENT DATE: 20170924
